FAERS Safety Report 4862275-4 (Version None)
Quarter: 2005Q4

REPORT INFORMATION
  Report Type: 
  Country: None (occurrence: None)
  Receive Date: 20051201
  Receipt Date: 20050812
  Transmission Date: 20060501
  Serious: No
  Sender: FDA-Public Use
  Company Number: 2005PV001162

PATIENT
  Age: 67 Year
  Sex: Male
  Weight: 89.3586 kg

DRUGS (6)
  1. BYETTA [Suspect]
     Indication: DIABETES MELLITUS NON-INSULIN-DEPENDENT
     Dosage: 10 MCG; BID; SC
     Route: 058
     Dates: start: 20050712
  2. GLUCOVANCE [Concomitant]
  3. ACTOS [Concomitant]
  4. KEFLEX [Concomitant]
  5. VITAMIN E     /001105/ [Concomitant]
  6. ASCORBIC ACID [Concomitant]

REACTIONS (3)
  - DIARRHOEA [None]
  - FLATULENCE [None]
  - GASTROOESOPHAGEAL REFLUX DISEASE [None]
